FAERS Safety Report 21362501 (Version 1)
Quarter: 2022Q3

REPORT INFORMATION
  Report Type: Spontaneous
  Country: CN (occurrence: CN)
  Receive Date: 20220922
  Receipt Date: 20220922
  Transmission Date: 20221027
  Serious: Yes (Hospitalization, Other)
  Sender: FDA-Public Use
  Company Number: CN-JNJFOC-20220928331

PATIENT
  Age: 64 Year
  Sex: Female
  Weight: 50 kg

DRUGS (2)
  1. DARZALEX [Suspect]
     Active Substance: DARATUMUMAB
     Indication: Plasma cell myeloma
     Dosage: NS 1000 ML + DARATUMUMAB INJECTION 0.8 G IV
     Route: 041
     Dates: start: 20220902
  2. SODIUM CHLORIDE [Concomitant]
     Active Substance: SODIUM CHLORIDE
     Indication: Product used for unknown indication
     Route: 041
     Dates: start: 20220902, end: 20220902

REACTIONS (3)
  - Abdominal distension [Recovered/Resolved]
  - Temperature intolerance [Recovering/Resolving]
  - Pyrexia [Recovered/Resolved]

NARRATIVE: CASE EVENT DATE: 20220902
